FAERS Safety Report 6297224-8 (Version None)
Quarter: 2009Q3

REPORT INFORMATION
  Report Type: 
  Country: None (occurrence: None)
  Receive Date: 20090804
  Receipt Date: 20090804
  Transmission Date: 20100115
  Serious: Yes (Other)
  Sender: FDA-Public Use
  Company Number: None

PATIENT
  Age: 50 Year
  Sex: Female
  Weight: 105.2345 kg

DRUGS (1)
  1. ABILIFY [Suspect]
     Indication: DEPRESSION
     Dosage: 2 MG 1 ORAL
     Route: 048
     Dates: start: 20090315, end: 20090620

REACTIONS (2)
  - HYPERACUSIS [None]
  - INSOMNIA [None]
